FAERS Safety Report 7065258-1 (Version None)
Quarter: 2010Q4

REPORT INFORMATION
  Report Type: 
  Country: None (occurrence: None)
  Receive Date: 20101022
  Receipt Date: 20101022
  Transmission Date: 20110411
  Serious: Yes (Hospitalization, Other)
  Sender: FDA-Public Use
  Company Number: None

PATIENT
  Age: 63 Year
  Sex: Female
  Weight: 50 kg

DRUGS (18)
  1. VORICONAZOLE [Suspect]
     Indication: BRONCHOPULMONARY ASPERGILLOSIS
     Dosage: 200 MG TWICE DAILY ORAL (047)
     Route: 048
  2. TACROLIMUS [Concomitant]
  3. AZATHIOPRINE [Concomitant]
  4. METOPROLOL [Concomitant]
  5. BACTRIM [Concomitant]
  6. PREDNISONE [Concomitant]
  7. TOPIRAMATE [Concomitant]
  8. PAXIL [Concomitant]
  9. NEURONTIN [Concomitant]
  10. REMERON [Concomitant]
  11. ZOLPIDEM [Concomitant]
  12. CITRACAL + D [Concomitant]
  13. MULTI-VITAMIN [Concomitant]
  14. PAMIDRONATE DISODIUM [Concomitant]
  15. CHOLECALCIFEROL [Concomitant]
  16. SLOW-MAG [Concomitant]
  17. VAGIFEM [Concomitant]
  18. IMITREX [Concomitant]

REACTIONS (5)
  - BLOOD ALKALINE PHOSPHATASE INCREASED [None]
  - BONE PAIN [None]
  - CUSHING'S SYNDROME [None]
  - FLUOROSIS [None]
  - MUSCULOSKELETAL CHEST PAIN [None]
